FAERS Safety Report 20883285 (Version 1)
Quarter: 2022Q2

REPORT INFORMATION
  Report Type: Spontaneous
  Country: US (occurrence: None)
  Receive Date: 20220526
  Receipt Date: 20220526
  Transmission Date: 20220720
  Serious: No
  Sender: FDA-Public Use
  Company Number: None

PATIENT
  Age: 68 Year
  Sex: Female

DRUGS (1)
  1. RESTASIS [Suspect]
     Active Substance: CYCLOSPORINE
     Dosage: FREQUENCY : DAILY;?
     Route: 047
     Dates: start: 20220401, end: 20220501

REACTIONS (1)
  - Eye irritation [None]

NARRATIVE: CASE EVENT DATE: 20220501
